FAERS Safety Report 17028353 (Version 4)
Quarter: 2020Q2

REPORT INFORMATION
  Report Type: Report from Study
  Country: AU (occurrence: AU)
  Receive Date: 20191113
  Receipt Date: 20200522
  Transmission Date: 20200713
  Serious: Yes (Hospitalization)
  Sender: FDA-Public Use
  Company Number: AU-RIGEL PHARMACEUTICALS, INC.-2019FOS000372

PATIENT
  Age: 40 Year
  Sex: Female
  Weight: 54 kg

DRUGS (9)
  1. MULTIVITAMINS [VITAMINS NOS] [Concomitant]
     Active Substance: VITAMINS
     Indication: HYPOVITAMINOSIS
     Dosage: 1 TABLET, 4-5 DAYS/WEEK
     Route: 048
     Dates: start: 20190315
  2. PARACETAMOL [Concomitant]
     Active Substance: ACETAMINOPHEN
     Indication: BACK PAIN
     Dosage: 1 GRAM, PRN
     Route: 048
     Dates: start: 20170906
  3. THYROXINE SODIUM [Concomitant]
     Active Substance: LEVOTHYROXINE SODIUM
     Indication: HYPOTHYROIDISM
     Dosage: 100 MICROGRAM, QD
     Route: 048
     Dates: start: 2004
  4. MAGNESIUM [Concomitant]
     Active Substance: MAGNESIUM
     Indication: HYPOMAGNESAEMIA
     Dosage: 1 TABLET, QD
     Route: 048
     Dates: start: 201610
  5. AMOXICILLIN. [Concomitant]
     Active Substance: AMOXICILLIN
     Indication: TOOTH INFECTION
     Dosage: UNK
     Route: 048
     Dates: start: 201906, end: 201906
  6. FOSTAMATINIB DISODIUM [Suspect]
     Active Substance: FOSTAMATINIB DISODIUM
     Indication: IMMUNE THROMBOCYTOPENIA
     Dosage: 150 MG, BID
     Route: 048
     Dates: start: 20151016
  7. FOSTAMATINIB DISODIUM [Suspect]
     Active Substance: FOSTAMATINIB DISODIUM
     Dosage: 150 UNK
     Route: 048
     Dates: start: 20160405
  8. RHINOCORT [BECLOMETASONE DIPROPIONATE] [Concomitant]
     Active Substance: BECLOMETHASONE DIPROPIONATE
     Indication: EAR SWELLING
     Dosage: 2 SPRAY, QD
     Route: 045
     Dates: start: 20180518
  9. TRIMETHOPRIM. [Concomitant]
     Active Substance: TRIMETHOPRIM
     Indication: URINARY TRACT INFECTION
     Dosage: UNK
     Route: 048
     Dates: start: 201907, end: 201907

REACTIONS (2)
  - Tuberculosis [Recovered/Resolved]
  - Erythema induratum [Recovered/Resolved]

NARRATIVE: CASE EVENT DATE: 20190714
